FAERS Safety Report 15450587 (Version 1)
Quarter: 2018Q3

REPORT INFORMATION
  Report Type: Spontaneous
  Country: US (occurrence: US)
  Receive Date: 20180926
  Receipt Date: 20180926
  Transmission Date: 20181010
  Serious: Yes (Hospitalization)
  Sender: FDA-Public Use
  Company Number: None

PATIENT
  Age: 66 Year
  Sex: Female
  Weight: 70.6 kg

DRUGS (2)
  1. CISPLATIN. [Suspect]
     Active Substance: CISPLATIN
     Dates: end: 20180910
  2. ETOPOSIDE (VP?16) [Suspect]
     Active Substance: ETOPOSIDE
     Dates: end: 20180914

REACTIONS (7)
  - Dyspnoea [None]
  - Cardiac flutter [None]
  - Palpitations [None]
  - Atrial fibrillation [None]
  - Tumour compression [None]
  - Pulmonary thrombosis [None]
  - Pyrexia [None]

NARRATIVE: CASE EVENT DATE: 20180917
